FAERS Safety Report 7938956-2 (Version None)
Quarter: 2011Q4

REPORT INFORMATION
  Report Type: 
  Country: None (occurrence: None)
  Receive Date: 20111124
  Receipt Date: 20111118
  Transmission Date: 20120403
  Serious: No
  Sender: FDA-Public Use
  Company Number: US-PFIZER INC-2011284163

PATIENT

DRUGS (2)
  1. VANCOMYCIN HCL [Suspect]
     Dosage: UNK
  2. BUPROPION [Concomitant]
     Dosage: UNK

REACTIONS (2)
  - ERYTHEMA [None]
  - DRUG HYPERSENSITIVITY [None]
